FAERS Safety Report 15766110 (Version 2)
Quarter: 2019Q2

REPORT INFORMATION
  Report Type: Spontaneous
  Country: US (occurrence: US)
  Receive Date: 20181227
  Receipt Date: 20190628
  Transmission Date: 20190711
  Serious: No
  Sender: FDA-Public Use
  Company Number: US-MYLANLABS-2018M1088538

PATIENT
  Age: 49 Year
  Sex: Female

DRUGS (1)
  1. PREDNISONE. [Suspect]
     Active Substance: PREDNISONE
     Indication: IGA NEPHROPATHY
     Dosage: UNK
     Route: 065

REACTIONS (5)
  - Acne [Unknown]
  - Weight increased [Unknown]
  - Muscle spasms [Unknown]
  - Swelling face [Unknown]
  - Oedema peripheral [Unknown]
